FAERS Safety Report 9808223 (Version 1)
Quarter: 2014Q1

REPORT INFORMATION
  Report Type: Report from Study
  Country: US (occurrence: US)
  Receive Date: 20140110
  Receipt Date: 20140110
  Transmission Date: 20141002
  Serious: Yes (Other)
  Sender: FDA-Public Use
  Company Number: US-ROCHE-1315071

PATIENT
  Sex: Female

DRUGS (16)
  1. LUCENTIS [Suspect]
     Indication: VENOUS OCCLUSION
     Route: 050
  2. LUCENTIS [Suspect]
     Indication: RETINAL OEDEMA
     Route: 050
     Dates: start: 20110505
  3. LUCENTIS [Suspect]
     Route: 050
     Dates: start: 20110707
  4. LUCENTIS [Suspect]
     Route: 050
     Dates: start: 20110616
  5. LUCENTIS [Suspect]
     Route: 050
     Dates: start: 20110711
  6. LUCENTIS [Suspect]
     Route: 050
     Dates: start: 20110718
  7. LUCENTIS [Suspect]
     Route: 050
     Dates: start: 20110801
  8. LUCENTIS [Suspect]
     Route: 050
     Dates: start: 20110815
  9. LUCENTIS [Suspect]
     Route: 050
     Dates: start: 20110818
  10. AVASTIN [Suspect]
     Indication: CYSTOID MACULAR OEDEMA
     Route: 050
     Dates: end: 20100519
  11. AVASTIN [Suspect]
     Indication: DIABETIC RETINOPATHY
     Route: 050
     Dates: start: 20110221
  12. AVASTIN [Suspect]
     Indication: VITREOUS HAEMORRHAGE
     Route: 050
     Dates: start: 20110414
  13. AVASTIN [Suspect]
     Indication: RETINAL DETACHMENT
     Route: 050
     Dates: start: 20110519
  14. SIMVASTATIN [Concomitant]
  15. HCTZ [Concomitant]
     Dosage: AS DIRECTED
     Route: 065
  16. NOVOLOG [Concomitant]
     Dosage: AS DIRECTED
     Route: 065

REACTIONS (9)
  - Diabetic retinal oedema [Unknown]
  - Off label use [Unknown]
  - Cataract [Unknown]
  - Retinal aneurysm [Unknown]
  - Tunnel vision [Unknown]
  - Retinal cyst [Unknown]
  - Retinal haemorrhage [Unknown]
  - Visual acuity reduced [Unknown]
  - Retinal disorder [Unknown]
